FAERS Safety Report 5532078-6 (Version None)
Quarter: 2007Q4

REPORT INFORMATION
  Report Type: 
  Country: None (occurrence: None)
  Receive Date: 20071203
  Receipt Date: 20071129
  Transmission Date: 20080405
  Serious: Yes (Other)
  Sender: FDA-Public Use
  Company Number: B0497585A

PATIENT
  Age: 40 Year
  Sex: Female
  Weight: 80 kg

DRUGS (4)
  1. CLENIL [Suspect]
     Indication: ASTHMA
     Dosage: 400MCG PER DAY
     Route: 055
     Dates: start: 20070802, end: 20071113
  2. ALBUTEROL [Concomitant]
     Indication: ASTHMA
     Route: 055
     Dates: start: 20060303
  3. FEXOFENADINE [Concomitant]
     Route: 048
     Dates: start: 20030623
  4. BECLOMETHASONE DIPROPIONATE [Concomitant]
     Indication: RHINITIS
     Route: 055
     Dates: start: 20070702

REACTIONS (2)
  - ASTHMA [None]
  - MOUTH ULCERATION [None]
